FAERS Safety Report 25235885 (Version 1)
Quarter: 2025Q2

REPORT INFORMATION
  Report Type: Spontaneous
  Country: GB (occurrence: GB)
  Receive Date: 20250424
  Receipt Date: 20250424
  Transmission Date: 20250716
  Serious: Yes (Death, Other)
  Sender: AMGEN
  Company Number: GB-AMGEN-GBRSP2025077589

PATIENT

DRUGS (1)
  1. ADALIMUMAB [Suspect]
     Active Substance: ADALIMUMAB
     Indication: Uveitis
     Route: 065

REACTIONS (13)
  - Death [Fatal]
  - Uveitis [Unknown]
  - Hypotony of eye [Unknown]
  - Hyphaema [Unknown]
  - Vitreous haemorrhage [Unknown]
  - Cataract [Unknown]
  - Cystoid macular oedema [Unknown]
  - Inflammation [Unknown]
  - Intraocular pressure increased [Unknown]
  - Corneal oedema [Unknown]
  - Diplopia [Unknown]
  - Keratitis [Unknown]
  - Neovascularisation [Unknown]
